FAERS Safety Report 14733498 (Version 1)
Quarter: 2018Q2

REPORT INFORMATION
  Report Type: Spontaneous
  Country: JP (occurrence: JP)
  Receive Date: 20180409
  Receipt Date: 20180409
  Transmission Date: 20180711
  Serious: Yes (Other)
  Sender: FDA-Public Use
  Company Number: JP-GLENMARK PHARMACEUTICALS-2018GMK034038

PATIENT
  Age: 33 Year
  Sex: Male

DRUGS (5)
  1. DICLOFENAC SODIUM. [Suspect]
     Active Substance: DICLOFENAC SODIUM
     Indication: PRODUCT USED FOR UNKNOWN INDICATION
     Dosage: UNK; 5 TIMES PER DAY FOR 5 DAYS
     Route: 047
  2. BETAMETHASONE. [Concomitant]
     Active Substance: BETAMETHASONE
     Indication: PRODUCT USED FOR UNKNOWN INDICATION
     Dosage: UNK; 5 TIMES DAILY
     Route: 047
  3. LEVOFLOXACIN. [Concomitant]
     Active Substance: LEVOFLOXACIN
     Indication: PRODUCT USED FOR UNKNOWN INDICATION
     Dosage: UNK; 5 TIMES DAILY
     Route: 047
  4. RIBOFLAVIN 0.1 % [Concomitant]
     Indication: PRODUCT USED FOR UNKNOWN INDICATION
     Dosage: UNK
     Route: 047
  5. ETHANOL 20 % [Concomitant]
     Indication: PRODUCT USED FOR UNKNOWN INDICATION
     Dosage: UNK; CENTRAL EPITHELIUM OF LEFT CORNEA WAS DEBRIDED WITH 20% ETHANOL
     Route: 047

REACTIONS (7)
  - Ulcerative keratitis [Recovering/Resolving]
  - Ciliary hyperaemia [Recovering/Resolving]
  - Corneal oedema [Recovering/Resolving]
  - Inappropriate schedule of drug administration [Unknown]
  - Persistent corneal epithelial defect [Recovering/Resolving]
  - Corneal opacity [Recovering/Resolving]
  - Incorrect drug administration duration [Unknown]
